FAERS Safety Report 16143711 (Version 1)
Quarter: 2019Q2

REPORT INFORMATION
  Report Type: Spontaneous
  Country: CA (occurrence: CA)
  Receive Date: 20190401
  Receipt Date: 20190401
  Transmission Date: 20190711
  Serious: Yes (Other)
  Sender: FDA-Public Use
  Company Number: CA-PFIZER INC-2019130823

PATIENT
  Age: 36 Year
  Sex: Female
  Weight: 74.83 kg

DRUGS (1)
  1. DEPO-PROVERA [Suspect]
     Active Substance: MEDROXYPROGESTERONE ACETATE
     Dosage: UNK
     Dates: start: 19991208, end: 20050126

REACTIONS (1)
  - Osteopenia [Recovering/Resolving]

NARRATIVE: CASE EVENT DATE: 20050118
